FAERS Safety Report 8508523-0 (Version None)
Quarter: 2012Q3

REPORT INFORMATION
  Report Type: 
  Country: None (occurrence: None)
  Receive Date: 20120713
  Receipt Date: 20120710
  Transmission Date: 20120928
  Serious: No
  Sender: FDA-Public Use
  Company Number: US-PFIZER INC-2012166437

PATIENT

DRUGS (1)
  1. GEODON [Suspect]
     Dosage: UNK
     Dates: end: 20120619

REACTIONS (1)
  - FEELING ABNORMAL [None]
